FAERS Safety Report 8999385 (Version 1)
Quarter: 2013Q1

REPORT INFORMATION
  Report Type: Spontaneous
  Country: US (occurrence: US)
  Receive Date: 20130103
  Receipt Date: 20130103
  Transmission Date: 20140127
  Serious: Yes (Hospitalization, Other)
  Sender: FDA-Public Use
  Company Number: US-PFIZER INC-2013001198

PATIENT
  Age: 87 Year
  Sex: Female
  Weight: 96.15 kg

DRUGS (1)
  1. LIPITOR [Suspect]
     Dosage: 40 MG, DAILY

REACTIONS (2)
  - Rib excision [Unknown]
  - Thrombosis [Unknown]
